FAERS Safety Report 19813979 (Version 3)
Quarter: 2021Q4

REPORT INFORMATION
  Report Type: Report from Study
  Country: AR (occurrence: AR)
  Receive Date: 20210910
  Receipt Date: 20211024
  Transmission Date: 20220303
  Serious: Yes (Other)
  Sender: FDA-Public Use
  Company Number: NVSC2021AR159776

PATIENT
  Age: 70 Year
  Sex: Female

DRUGS (4)
  1. AFINITOR [Suspect]
     Active Substance: EVEROLIMUS
     Indication: Neuroendocrine tumour
     Dosage: 10 MG, QD
     Route: 048
     Dates: start: 20210316, end: 20210809
  2. AFINITOR [Suspect]
     Active Substance: EVEROLIMUS
     Dosage: 10 MG, QD
     Route: 048
  3. AFINITOR [Suspect]
     Active Substance: EVEROLIMUS
     Dosage: 5 MG, QD
     Route: 065
  4. AFINITOR [Suspect]
     Active Substance: EVEROLIMUS
     Dosage: 10 MG, QD
     Route: 048
     Dates: start: 20210819

REACTIONS (25)
  - Nodule [Unknown]
  - Superior vena cava syndrome [Unknown]
  - Hypoaesthesia oral [Recovering/Resolving]
  - Pharyngeal swelling [Recovering/Resolving]
  - Lacrimation increased [Unknown]
  - Tremor [Not Recovered/Not Resolved]
  - Tinnitus [Unknown]
  - Somnolence [Unknown]
  - Haematocrit abnormal [Unknown]
  - Feeling abnormal [Unknown]
  - Toxicity to various agents [Unknown]
  - Pain [Unknown]
  - Swelling [Unknown]
  - Sensory disturbance [Unknown]
  - Malaise [Unknown]
  - Epistaxis [Unknown]
  - Cough [Recovering/Resolving]
  - Pruritus [Recovering/Resolving]
  - Anaemia [Recovering/Resolving]
  - Decreased appetite [Not Recovered/Not Resolved]
  - Dizziness [Unknown]
  - Weight decreased [Unknown]
  - Asthenia [Unknown]
  - Headache [Unknown]
  - Oedema [Unknown]

NARRATIVE: CASE EVENT DATE: 20210316
